FAERS Safety Report 8955363 (Version 1)
Quarter: 2012Q4

REPORT INFORMATION
  Report Type: 
  Country: IE (occurrence: IE)
  Receive Date: 20121207
  Receipt Date: 20121207
  Transmission Date: 20130627
  Serious: Yes (Hospitalization, Other)
  Sender: FDA-Public Use
  Company Number: IE-ABBOTT-12P-229-1018451-00

PATIENT
  Sex: Male
  Weight: 7.14 kg

DRUGS (1)
  1. SYNAGIS [Suspect]
     Indication: CONGENITAL LARYNGEAL STRIDOR
     Route: 030
     Dates: start: 20121001

REACTIONS (4)
  - Adverse drug reaction [Recovered/Resolved]
  - Rash [Recovered/Resolved]
  - Meningitis [Recovered/Resolved]
  - Pyrexia [Recovered/Resolved]
